FAERS Safety Report 4941001-4 (Version None)
Quarter: 2006Q1

REPORT INFORMATION
  Report Type: 
  Country: None (occurrence: None)
  Receive Date: 20060313
  Receipt Date: 20060105
  Transmission Date: 20060701
  Serious: Yes (Other)
  Sender: FDA-Public Use
  Company Number: PHEH2006US00582

PATIENT
  Age: 76 Year
  Sex: Male

DRUGS (5)
  1. NEORAL [Suspect]
     Indication: APLASIA PURE RED CELL
     Dosage: 200 MG, QD
     Route: 048
  2. NEORAL [Suspect]
     Dosage: 100 MG, QD
     Route: 048
  3. ASPIRIN [Concomitant]
  4. WELLBUTRIN [Concomitant]
     Indication: DEPRESSION
     Dosage: 400 MG, UNK
     Route: 048
  5. STOOL SOFTENER [Concomitant]
     Indication: CONSTIPATION

REACTIONS (6)
  - BLOOD DISORDER [None]
  - DISEASE RECURRENCE [None]
  - DRUG LEVEL INCREASED [None]
  - MICTURITION DISORDER [None]
  - PROSTATE EXAMINATION ABNORMAL [None]
  - SURGERY [None]
